FAERS Safety Report 8374188-4 (Version None)
Quarter: 2012Q2

REPORT INFORMATION
  Report Type: 
  Country: None (occurrence: None)
  Receive Date: 20120521
  Receipt Date: 20120515
  Transmission Date: 20120825
  Serious: Yes (Other)
  Sender: FDA-Public Use
  Company Number: US-TEVA-335325USA

PATIENT
  Age: 34 Year
  Sex: Male

DRUGS (1)
  1. TRAZODONE HCL [Suspect]

REACTIONS (4)
  - LIP SWELLING [None]
  - LOSS OF CONSCIOUSNESS [None]
  - LIP INJURY [None]
  - SYNCOPE [None]
